FAERS Safety Report 4873203-X (Version None)
Quarter: 2006Q1

REPORT INFORMATION
  Report Type: 
  Country: None (occurrence: None)
  Receive Date: 20060105
  Receipt Date: 20060103
  Transmission Date: 20060701
  Serious: Yes (Death)
  Sender: FDA-Public Use
  Company Number: JP-GILEAD-2006-0009057

PATIENT
  Sex: Female

DRUGS (6)
  1. HEPSERA [Suspect]
     Indication: HEPATITIS B
     Route: 048
     Dates: start: 20040612
  2. ZEFFIX [Suspect]
     Indication: HEPATIC CIRRHOSIS
     Route: 048
     Dates: start: 20000101
  3. FLUCONAZOLE [Concomitant]
  4. LACTULOSE [Concomitant]
  5. SODIUM ALGINATE [Concomitant]
  6. MICONAZOLE NITRATE [Concomitant]

REACTIONS (1)
  - DEATH [None]
